FAERS Safety Report 12466569 (Version 1)
Quarter: 2016Q2

REPORT INFORMATION
  Report Type: Spontaneous
  Country: FR (occurrence: FR)
  Receive Date: 20160615
  Receipt Date: 20160615
  Transmission Date: 20160815
  Serious: Yes (Life-Threatening, Hospitalization)
  Sender: FDA-Public Use
  Company Number: FR-ASTRAZENECA-2016SE61588

PATIENT
  Age: 24486 Day
  Sex: Female

DRUGS (7)
  1. FLECTOR [Suspect]
     Active Substance: DICLOFENAC EPOLAMINE
     Indication: PERIARTICULAR DISORDER
     Route: 003
     Dates: start: 20160411, end: 20160420
  2. LEVOTHYROX [Concomitant]
     Active Substance: LEVOTHYROXINE
  3. INEXIUM [Suspect]
     Active Substance: ESOMEPRAZOLE
     Route: 048
     Dates: start: 20160411, end: 20160420
  4. INEGY [Concomitant]
     Active Substance: EZETIMIBE\SIMVASTATIN
  5. INEXIUM [Suspect]
     Active Substance: ESOMEPRAZOLE
     Route: 048
     Dates: start: 20160430
  6. APROVEL [Concomitant]
     Active Substance: IRBESARTAN
  7. NABUCOX [Suspect]
     Active Substance: NABUMETONE
     Indication: PERIARTICULAR DISORDER
     Route: 048
     Dates: start: 20160411, end: 20160420

REACTIONS (7)
  - Acute generalised exanthematous pustulosis [Recovered/Resolved]
  - Rhabdomyolysis [Recovered/Resolved with Sequelae]
  - Hepatocellular injury [Recovered/Resolved with Sequelae]
  - Eosinophilia [Recovering/Resolving]
  - Haemodynamic instability [Unknown]
  - Acute pulmonary oedema [Recovered/Resolved]
  - Acute kidney injury [Recovered/Resolved]

NARRATIVE: CASE EVENT DATE: 20160421
